FAERS Safety Report 12493778 (Version 4)
Quarter: 2016Q4

REPORT INFORMATION
  Report Type: Report from Study
  Country: US (occurrence: US)
  Receive Date: 20160623
  Receipt Date: 20161201
  Transmission Date: 20170207
  Serious: Yes (Hospitalization, Other)
  Sender: FDA-Public Use
  Company Number: US-GILEAD-2016-0220290

PATIENT
  Age: 60 Year
  Sex: Female

DRUGS (3)
  1. AMBRISENTAN [Suspect]
     Active Substance: AMBRISENTAN
     Indication: PULMONARY ARTERIAL HYPERTENSION
     Dosage: 5 MG, QD
     Route: 048
     Dates: start: 20150601, end: 20160615
  2. SILDENAFIL. [Concomitant]
     Active Substance: SILDENAFIL
  3. AMBRISENTAN [Suspect]
     Active Substance: AMBRISENTAN
     Dosage: 5 MG, QD
     Route: 048
     Dates: start: 20161004

REACTIONS (6)
  - Oedema peripheral [Recovered/Resolved]
  - Cardiac failure congestive [Not Recovered/Not Resolved]
  - Hypoxia [Recovered/Resolved]
  - Oedema peripheral [Recovered/Resolved]
  - Acute respiratory failure [Not Recovered/Not Resolved]
  - Dyspnoea [Recovered/Resolved]

NARRATIVE: CASE EVENT DATE: 20160527
